FAERS Safety Report 10597934 (Version 1)
Quarter: 2014Q4

REPORT INFORMATION
  Report Type: Spontaneous
  Country: US (occurrence: None)
  Receive Date: 20141112
  Receipt Date: 20141112
  Transmission Date: 20150529
  Serious: No
  Sender: FDA-Public Use
  Company Number: US-016607

PATIENT
  Age: 61 Year
  Sex: Female
  Weight: 64.41 kg

DRUGS (1)
  1. PREPOPIK [Suspect]
     Active Substance: ANHYDROUS CITRIC ACID\MAGNESIUM OXIDE\SODIUM PICOSULFATE
     Indication: BOWEL PREPARATION
     Dosage: (FIRST PACKET : 28 JULY 2014 APPROX. 7:30AM ORAL)
     Route: 048
     Dates: start: 20140727, end: 20140728

REACTIONS (4)
  - Muscle spasms [None]
  - Gastrointestinal inflammation [None]
  - Diarrhoea [None]
  - Drug ineffective [None]

NARRATIVE: CASE EVENT DATE: 20140728
